FAERS Safety Report 17918630 (Version 2)
Quarter: 2020Q2

REPORT INFORMATION
  Report Type: Spontaneous
  Country: US (occurrence: US)
  Receive Date: 20200619
  Receipt Date: 20200625
  Transmission Date: 20200714
  Serious: Yes (Hospitalization, Other)
  Sender: FDA-Public Use
  Company Number: US-JNJFOC-20200618467

PATIENT
  Age: 43 Year
  Sex: Female
  Weight: 63.56 kg

DRUGS (66)
  1. CHOLECALCIFEROL [Concomitant]
     Active Substance: CHOLECALCIFEROL
     Dates: start: 20140219
  2. ALBUMIN [Concomitant]
     Active Substance: ALBUMIN HUMAN
     Dates: start: 20150906
  3. IOHEXOL [Concomitant]
     Active Substance: IOHEXOL
     Dates: start: 20160417
  4. DEXTROSE 5% [Concomitant]
     Active Substance: DEXTROSE
     Dates: start: 20191227
  5. MAGNESIUM SULFATE. [Concomitant]
     Active Substance: MAGNESIUM SULFATE
     Dates: start: 20191227
  6. METOLAZONE. [Concomitant]
     Active Substance: METOLAZONE
     Indication: OEDEMA PERIPHERAL
     Route: 048
  7. PRILOSEC [Concomitant]
     Active Substance: OMEPRAZOLE MAGNESIUM
  8. ZANTAC [Concomitant]
     Active Substance: RANITIDINE HYDROCHLORIDE
  9. SPIRONOLACTONE. [Concomitant]
     Active Substance: SPIRONOLACTONE
     Dates: start: 20100222
  10. CEFEPIME [Concomitant]
     Active Substance: CEFEPIME HYDROCHLORIDE
     Dates: start: 20191227
  11. METRONIDAZOLE. [Concomitant]
     Active Substance: METRONIDAZOLE
     Dates: start: 20191227
  12. PROCHLORPERAZINE. [Concomitant]
     Active Substance: PROCHLORPERAZINE
     Dates: start: 20191227
  13. LASIX [Concomitant]
     Active Substance: FUROSEMIDE
     Indication: OEDEMA PERIPHERAL
     Route: 048
     Dates: start: 20150131
  14. CEPHULAC [Concomitant]
     Active Substance: LACTULOSE
  15. FOLIC ACID. [Concomitant]
     Active Substance: FOLIC ACID
     Dates: start: 20150307
  16. FENTANYL. [Concomitant]
     Active Substance: FENTANYL
     Dates: start: 20150822
  17. POTASSIUM CHLORIDE. [Concomitant]
     Active Substance: POTASSIUM CHLORIDE
     Dates: start: 20160220
  18. ACETAMINOPHEN. [Concomitant]
     Active Substance: ACETAMINOPHEN
     Dates: start: 20191227
  19. IODIXANOL. [Concomitant]
     Active Substance: IODIXANOL
     Dates: start: 20191227
  20. NOREPINEPHRINE. [Concomitant]
     Active Substance: NOREPINEPHRINE
     Dates: start: 20191227
  21. LASIX [Concomitant]
     Active Substance: FUROSEMIDE
     Route: 048
  22. RIVAROXABAN [Suspect]
     Active Substance: RIVAROXABAN
     Indication: THROMBOSIS
     Route: 048
  23. ASPIRIN                            /00002701/ [Suspect]
     Active Substance: ASPIRIN
     Indication: PRODUCT USED FOR UNKNOWN INDICATION
     Route: 065
  24. LACTULOSE. [Concomitant]
     Active Substance: LACTULOSE
  25. DEXTROSE. [Concomitant]
     Active Substance: DEXTROSE
     Dates: start: 20150906
  26. LEVOTHYROXINE. [Concomitant]
     Active Substance: LEVOTHYROXINE
  27. OMEPRAZOLE. [Concomitant]
     Active Substance: OMEPRAZOLE
  28. IPRATROPIUM [Concomitant]
     Active Substance: IPRATROPIUM
  29. INSULIN LISPRO [Concomitant]
     Active Substance: INSULIN LISPRO
     Dates: start: 20191227
  30. OXYMETAZOLINE [Concomitant]
     Active Substance: OXYMETAZOLINE
     Dates: start: 20191227
  31. OPSUMIT [Suspect]
     Active Substance: MACITENTAN
     Route: 048
     Dates: start: 20200121
  32. DABIGATRAN [Concomitant]
     Active Substance: DABIGATRAN
     Dates: start: 20111129
  33. XIFAXAN [Concomitant]
     Active Substance: RIFAXIMIN
  34. ALDACTONE [Concomitant]
     Active Substance: SPIRONOLACTONE
  35. CALCIUM CARBONATE. [Concomitant]
     Active Substance: CALCIUM CARBONATE
     Dates: start: 20190716
  36. NICOTINE. [Concomitant]
     Active Substance: NICOTINE
     Dates: start: 20190716
  37. CHLORHEXIDINE [Concomitant]
     Active Substance: CHLORHEXIDINE
     Dates: start: 20191227
  38. FAMOTIDINE. [Concomitant]
     Active Substance: FAMOTIDINE
     Dates: start: 20191227
  39. HYDROMORPHONE [Concomitant]
     Active Substance: HYDROMORPHONE
     Dates: start: 20191227
  40. ONDASETRON                         /00955301/ [Concomitant]
     Active Substance: ONDANSETRON
     Dates: start: 20191227
  41. PHOSPHATE SANDOZ [Concomitant]
     Active Substance: SODIUM PHOSPHATE, MONOBASIC, ANHYDROUS
     Dates: start: 20191227
  42. SODIUM CHLORIDE. [Concomitant]
     Active Substance: SODIUM CHLORIDE
     Dates: start: 20191227
  43. OPSUMIT [Suspect]
     Active Substance: MACITENTAN
     Indication: PRODUCT USED FOR UNKNOWN INDICATION
     Route: 048
     Dates: start: 20140801
  44. REVATIO [Concomitant]
     Active Substance: SILDENAFIL CITRATE
  45. OXYGEN. [Concomitant]
     Active Substance: OXYGEN
     Dates: start: 20131014
  46. ALBUTEROL                          /00139501/ [Concomitant]
     Active Substance: ALBUTEROL
     Dates: start: 20190716
  47. FERROUS SULFATE. [Concomitant]
     Active Substance: FERROUS SULFATE
  48. SENNA LAXATIVE [Concomitant]
     Active Substance: SENNOSIDES
     Dates: start: 20190716
  49. CALAMINE LOTION PHENOLATED [Concomitant]
     Dates: start: 20191227
  50. ALBUTEROL W/IPRATROPIUM [Concomitant]
     Active Substance: ALBUTEROL\IPRATROPIUM
     Dates: start: 20191227
  51. RIVAROXABAN [Suspect]
     Active Substance: RIVAROXABAN
     Indication: DEEP VEIN THROMBOSIS
     Route: 048
  52. ENOXAPARIN [Concomitant]
     Active Substance: ENOXAPARIN
     Dates: start: 20160417
  53. OXYCODONE [Concomitant]
     Active Substance: OXYCODONE
  54. ACTIGALL [Concomitant]
     Active Substance: URSODIOL
  55. RIFAXIMIN. [Concomitant]
     Active Substance: RIFAXIMIN
  56. FERROUS SULFATE. [Concomitant]
     Active Substance: FERROUS SULFATE
     Dates: start: 20151105
  57. LEVOFLOXACIN. [Concomitant]
     Active Substance: LEVOFLOXACIN
  58. AZITHROMYCIN ANHYDROUS. [Concomitant]
     Active Substance: AZITHROMYCIN ANHYDROUS
     Dates: start: 20191227
  59. PROPOFOL. [Concomitant]
     Active Substance: PROPOFOL
     Dates: start: 20191227
  60. LASIX [Concomitant]
     Active Substance: FUROSEMIDE
     Route: 048
  61. METHADONE [Concomitant]
     Active Substance: METHADONE HYDROCHLORIDE
     Dates: start: 20080225
  62. SERTRALINE [Concomitant]
     Active Substance: SERTRALINE HYDROCHLORIDE
     Dates: start: 20190716
  63. CARVEDILOL. [Concomitant]
     Active Substance: CARVEDILOL
     Dates: start: 20191227
  64. PERFLUTREN [Concomitant]
     Active Substance: PERFLUTREN
     Dates: start: 20191227
  65. RANITIDINE. [Concomitant]
     Active Substance: RANITIDINE
     Dates: start: 20191227
  66. THIAMINE. [Concomitant]
     Active Substance: THIAMINE
     Dates: start: 20191227

REACTIONS (36)
  - Gastrointestinal erosion [Unknown]
  - Hypothyroidism [Unknown]
  - Respiratory distress [Unknown]
  - Gastrointestinal mucosal disorder [Unknown]
  - Ammonia increased [Unknown]
  - Internal haemorrhage [Unknown]
  - Condition aggravated [Unknown]
  - Gastrooesophageal reflux disease [Unknown]
  - Dysphagia [Unknown]
  - Pneumonia escherichia [Unknown]
  - Toxic encephalopathy [Recovered/Resolved]
  - Hypervolaemia [Recovered/Resolved]
  - Adverse event [Unknown]
  - Gastric polyps [Unknown]
  - Surgery [Unknown]
  - Pneumonia [Unknown]
  - Gastrointestinal haemorrhage [Recovered/Resolved with Sequelae]
  - Gastric ulcer [Unknown]
  - Skin ulcer [Unknown]
  - Peripheral venous disease [Unknown]
  - Post thrombotic syndrome [Unknown]
  - Blood bilirubin increased [Unknown]
  - Back pain [Recovered/Resolved]
  - Portal hypertension [Unknown]
  - Blood lactate dehydrogenase increased [Unknown]
  - Pulmonary oedema [Unknown]
  - Right ventricular failure [Unknown]
  - Cellulitis [Unknown]
  - Abdominal pain [Recovered/Resolved]
  - Dermatitis [Unknown]
  - Hepatic encephalopathy [Unknown]
  - Septic shock [Unknown]
  - Wound infection pseudomonas [Unknown]
  - Portal hypertensive gastropathy [Unknown]
  - Compression fracture [Unknown]
  - Varices oesophageal [Unknown]

NARRATIVE: CASE EVENT DATE: 20150717
